FAERS Safety Report 12443598 (Version 1)
Quarter: 2016Q2

REPORT INFORMATION
  Report Type: Spontaneous
  Country: US (occurrence: US)
  Receive Date: 20160607
  Receipt Date: 20160607
  Transmission Date: 20160815
  Serious: No
  Sender: FDA-Public Use
  Company Number: US-INCYTE CORPORATION-2016IN002332

PATIENT
  Sex: Female

DRUGS (2)
  1. JAKAFI [Suspect]
     Active Substance: RUXOLITINIB
     Dosage: 5 MG, BID (SKIP DOSES TWICE A WEEK)
     Route: 048
     Dates: start: 201605
  2. JAKAFI [Suspect]
     Active Substance: RUXOLITINIB
     Indication: MYELOFIBROSIS
     Dosage: 5 MG, BID
     Route: 048
     Dates: start: 20140904

REACTIONS (3)
  - Confusional state [Not Recovered/Not Resolved]
  - Drug dose omission [Recovered/Resolved]
  - White blood cell count decreased [Recovered/Resolved]
